FAERS Safety Report 4503319-9 (Version None)
Quarter: 2004Q4

REPORT INFORMATION
  Report Type: 
  Country: None (occurrence: None)
  Receive Date: 20041112
  Receipt Date: 20041103
  Transmission Date: 20050328
  Serious: Yes (Hospitalization)
  Sender: FDA-Public Use
  Company Number: 2004-11-0135

PATIENT
  Age: 19 Month
  Sex: Male

DRUGS (2)
  1. CLARITIN [Suspect]
     Indication: RHINORRHOEA
     Dosage: 5 ML Q12HRS ORAL
     Route: 048
  2. RHINATHIOL SYRUP [Suspect]
     Indication: RHINORRHOEA
     Dosage: 5 CC ORAL
     Route: 048

REACTIONS (4)
  - ANXIETY [None]
  - CARDIAC FIBRILLATION [None]
  - CRYING [None]
  - DRUG EFFECT DECREASED [None]
